FAERS Safety Report 21544643 (Version 1)
Quarter: 2022Q4

REPORT INFORMATION
  Report Type: Report from Study
  Country: US (occurrence: US)
  Receive Date: 20221102
  Receipt Date: 20221102
  Transmission Date: 20230113
  Serious: No
  Sender: FDA-Public Use
  Company Number: US-ABBVIE-22K-163-4536547-00

PATIENT

DRUGS (2)
  1. HUMIRA [Suspect]
     Active Substance: ADALIMUMAB
     Indication: Product used for unknown indication
     Route: 058
     Dates: end: 2022
  2. HUMIRA [Suspect]
     Active Substance: ADALIMUMAB
     Dosage: NOT HAD INJECTION FOR 10 DAYS
     Route: 058
     Dates: start: 20220831

REACTIONS (4)
  - Condition aggravated [Unknown]
  - Rhinalgia [Unknown]
  - Epistaxis [Unknown]
  - Rhinophyma [Unknown]
